APPROVED DRUG PRODUCT: PENTOXIFYLLINE
Active Ingredient: PENTOXIFYLLINE
Strength: 400MG
Dosage Form/Route: TABLET, EXTENDED RELEASE;ORAL
Application: A074874 | Product #001
Applicant: PLIVA INC AN INDIRECT WHOLLY OWNED SUB OF TEVA PHARMACEUTICALS USA INC
Approved: May 25, 1999 | RLD: No | RS: No | Type: DISCN